FAERS Safety Report 7072030-5 (Version None)
Quarter: 2010Q4

REPORT INFORMATION
  Report Type: 
  Country: None (occurrence: None)
  Receive Date: 20101029
  Receipt Date: 20101021
  Transmission Date: 20110411
  Serious: Yes (Other)
  Sender: FDA-Public Use
  Company Number: PHHY2010NL71081

PATIENT
  Sex: Male

DRUGS (3)
  1. ZOMETA [Suspect]
     Dosage: 4 MG/5ML
     Dates: start: 20100615
  2. ZOMETA [Suspect]
     Dosage: 4 MG/5ML
     Dates: start: 20100927
  3. ZOMETA [Suspect]
     Dosage: 4 MG/5ML
     Dates: start: 20101020

REACTIONS (4)
  - DIARRHOEA [None]
  - FRACTURE [None]
  - SURGERY [None]
  - VOMITING [None]
